FAERS Safety Report 8275322-7 (Version None)
Quarter: 2012Q2

REPORT INFORMATION
  Report Type: 
  Country: None (occurrence: None)
  Receive Date: 20120411
  Receipt Date: 20120328
  Transmission Date: 20120825
  Serious: Yes (Life-Threatening)
  Sender: FDA-Public Use
  Company Number: JP-ROCHE-1041500

PATIENT
  Sex: Female
  Weight: 59 kg

DRUGS (16)
  1. MIRCERA [Suspect]
     Indication: NEPHROGENIC ANAEMIA
     Route: 042
     Dates: start: 20111207, end: 20120201
  2. FAMOTIDINE [Concomitant]
     Indication: GASTRITIS
     Route: 048
     Dates: start: 20100309
  3. INNOLET 30R [Concomitant]
     Indication: TYPE 1 DIABETES MELLITUS
     Dosage: 22 AND 8 UNITS OF EVENING OF MORNING
     Route: 058
     Dates: end: 20100412
  4. BENIDIPINE HYDROCHLORIDE [Concomitant]
     Indication: HYPERTENSION
     Route: 048
     Dates: start: 20100310, end: 20100317
  5. INNOLET 30R [Concomitant]
     Dosage: 20 AND 8 UNITS OF EVENING OF MORNING
     Route: 058
     Dates: start: 20100413, end: 20100510
  6. INNOLET 30R [Concomitant]
     Dosage: 18 AND 6 UNITS OF EVENING OF MORNING
     Route: 058
     Dates: start: 20100511, end: 20100707
  7. INNOLET 30R [Concomitant]
     Dosage: 16 AND 4 UNITS OF EVENING OF MORNING
     Route: 058
     Dates: start: 20100708, end: 20100803
  8. ASPIRIN [Concomitant]
     Indication: PROPHYLAXIS
     Route: 048
     Dates: start: 20100309
  9. INNOLET 30R [Concomitant]
     Dosage: 14 AND 4 UNITS OF EVENING OF MORNING
     Route: 058
     Dates: start: 20100804
  10. OLMESARTAN MEDOXOMIL [Concomitant]
     Indication: HYPERTENSION
     Route: 048
     Dates: end: 20100308
  11. OLMESARTAN MEDOXOMIL [Concomitant]
     Route: 048
     Dates: start: 20100309
  12. SODIUM BICARBONATE [Concomitant]
     Indication: METABOLIC ACIDOSIS
     Route: 048
     Dates: start: 20100908, end: 20120318
  13. BENIDIPINE HYDROCHLORIDE [Concomitant]
     Route: 048
     Dates: start: 20100318, end: 20120318
  14. ARGAMATE [Concomitant]
     Indication: HYPERKALAEMIA
     Route: 048
     Dates: start: 20100324, end: 20120318
  15. ALLOPURINOL [Concomitant]
     Indication: HYPERURICAEMIA
     Route: 048
     Dates: start: 20100309, end: 20120318
  16. AMLODIPINE [Concomitant]
     Indication: HYPERTENSION
     Route: 048

REACTIONS (1)
  - EOSINOPHILIC PNEUMONIA ACUTE [None]
